FAERS Safety Report 4673724-9 (Version None)
Quarter: 2005Q2

REPORT INFORMATION
  Report Type: 
  Country: None (occurrence: None)
  Receive Date: 20050523
  Receipt Date: 20050510
  Transmission Date: 20051028
  Serious: Yes (Hospitalization)
  Sender: FDA-Public Use
  Company Number: 2005073716

PATIENT
  Age: 40 Year
  Sex: Male

DRUGS (4)
  1. ZIPRASIDONE (CAPS) (ZIPRASIDONE) [Suspect]
     Indication: ILL-DEFINED DISORDER
     Dosage: 80 MG (2 IN 1 D)
  2. CLOZAPINE [Suspect]
     Indication: ILL-DEFINED DISORDER
     Dosage: 400 MG (1 IN 1 D)
     Dates: start: 19910101
  3. CITALOPRAM (CITALOPRAM) [Suspect]
     Indication: ILL-DEFINED DISORDER
     Dosage: 80 MG (1 IN 1 D)
  4. VALPROIC ACID [Suspect]
     Indication: ILL-DEFINED DISORDER
     Dosage: 2000 MG (1 IN 1 D)

REACTIONS (22)
  - BLOOD GLUCOSE INCREASED [None]
  - BLOOD PRESSURE INCREASED [None]
  - BODY TEMPERATURE INCREASED [None]
  - CATATONIA [None]
  - CENTRAL NERVOUS SYSTEM INFECTION [None]
  - DELIRIUM [None]
  - DRUG TOXICITY [None]
  - HEART RATE INCREASED [None]
  - HYPERHIDROSIS [None]
  - HYPERTONIA [None]
  - LOSS OF CONSCIOUSNESS [None]
  - MENTAL STATUS CHANGES [None]
  - MUSCLE RIGIDITY [None]
  - MUSCULOSKELETAL STIFFNESS [None]
  - MYDRIASIS [None]
  - NEUROLEPTIC MALIGNANT SYNDROME [None]
  - RESPIRATORY RATE INCREASED [None]
  - SEROTONIN SYNDROME [None]
  - TACHYCARDIA [None]
  - TREATMENT NONCOMPLIANCE [None]
  - WEIGHT INCREASED [None]
  - WHITE BLOOD CELL COUNT INCREASED [None]
